FAERS Safety Report 6577792-9 (Version None)
Quarter: 2010Q1

REPORT INFORMATION
  Report Type: 
  Country: None (occurrence: None)
  Receive Date: 20100211
  Receipt Date: 20100201
  Transmission Date: 20100710
  Serious: Yes (Death)
  Sender: FDA-Public Use
  Company Number: JP-BAYER-201010030BYL

PATIENT
  Age: 73 Year
  Sex: Female
  Weight: 59 kg

DRUGS (22)
  1. NEXAVAR [Suspect]
     Indication: HEPATIC NEOPLASM MALIGNANT
     Dosage: TOTAL DAILY DOSE: 800 MG  UNIT DOSE: 200 MG
     Route: 048
     Dates: start: 20091215, end: 20091227
  2. NEXAVAR [Suspect]
     Dosage: TOTAL DAILY DOSE: 400 MG  UNIT DOSE: 200 MG
     Route: 048
     Dates: start: 20091228, end: 20091230
  3. NEO-MINOPHAGEN C [Concomitant]
     Route: 042
     Dates: start: 20091216, end: 20091216
  4. NEO-MINOPHAGEN C [Concomitant]
     Route: 042
     Dates: start: 20091218, end: 20091218
  5. NEO-MINOPHAGEN C [Concomitant]
     Route: 042
     Dates: start: 20091221, end: 20091221
  6. NEO-MINOPHAGEN C [Concomitant]
     Route: 042
     Dates: start: 20091223, end: 20091223
  7. URSO 250 [Concomitant]
     Route: 048
     Dates: start: 20091220
  8. URSO 250 [Concomitant]
     Route: 048
     Dates: start: 20091218, end: 20091219
  9. URSO 250 [Concomitant]
     Route: 048
     Dates: start: 20091215, end: 20091215
  10. URSO 250 [Concomitant]
     Route: 048
     Dates: start: 20091216, end: 20091217
  11. CONIEL [Concomitant]
     Route: 048
     Dates: start: 20091220
  12. CONIEL [Concomitant]
     Route: 048
     Dates: start: 20091217, end: 20091217
  13. CONIEL [Concomitant]
     Route: 048
     Dates: start: 20091216, end: 20091216
  14. CONIEL [Concomitant]
     Route: 048
     Dates: start: 20091215, end: 20091215
  15. CONIEL [Concomitant]
     Route: 048
     Dates: start: 20091218, end: 20091219
  16. BIO-THREE [Concomitant]
     Route: 048
     Dates: start: 20091216, end: 20091217
  17. BIO-THREE [Concomitant]
     Route: 048
     Dates: start: 20091218, end: 20091219
  18. BIO-THREE [Concomitant]
     Route: 048
     Dates: start: 20091215, end: 20091215
  19. BIO-THREE [Concomitant]
     Route: 048
     Dates: start: 20091220
  20. PL [Concomitant]
     Route: 048
     Dates: start: 20091226
  21. MARZULENE [Concomitant]
     Route: 048
     Dates: start: 20091226
  22. LOXONIN [Concomitant]
     Route: 065
     Dates: start: 20091226

REACTIONS (8)
  - ABDOMINAL PAIN [None]
  - DIARRHOEA [None]
  - DISSEMINATED INTRAVASCULAR COAGULATION [None]
  - HEPATIC FUNCTION ABNORMAL [None]
  - HYPONATRAEMIA [None]
  - METABOLIC ACIDOSIS [None]
  - RENAL DISORDER [None]
  - THROMBOCYTOPENIA [None]
